FAERS Safety Report 18239590 (Version 1)
Quarter: 2020Q3

REPORT INFORMATION
  Report Type: Spontaneous
  Country: CN (occurrence: CN)
  Receive Date: 20200907
  Receipt Date: 20200907
  Transmission Date: 20201103
  Serious: Yes (Other)
  Sender: FDA-Public Use
  Company Number: CN-BAXTER-2020BAX018057

PATIENT
  Age: 58 Year
  Sex: Female
  Weight: 53 kg

DRUGS (11)
  1. LISINOPRIL SODIUM [Suspect]
     Active Substance: LISINOPRIL
     Indication: PROPHYLAXIS
     Dosage: 1 GRAIN OR 1 TABLET, ENTERIC?COATED PELLETS CAPSULES, ENTERIC?COATED XIAOYAO CAPSULE
     Route: 048
     Dates: start: 20200814, end: 20200818
  2. ASPIRIN. [Suspect]
     Active Substance: ASPIRIN
     Indication: CEREBRAL INFARCTION
     Dosage: 1 TABLET, ENTERIC?COATED TABLETS
     Route: 048
     Dates: start: 20200813, end: 20200815
  3. PANTOPRAZOLE SODIUM. [Suspect]
     Active Substance: PANTOPRAZOLE SODIUM
     Indication: PRODUCT USED FOR UNKNOWN INDICATION
     Dosage: 1 TABLET ENTERIC?COATED PELLETS CAPSULES
     Route: 048
     Dates: start: 20200814
  4. SODIUM CHLORIDE. [Suspect]
     Active Substance: SODIUM CHLORIDE
     Dosage: TO DILUTE GINKGO DITERPENE LACTONE MEGLUMINE INJECTION
     Route: 041
     Dates: start: 20200813, end: 20200818
  5. SODIUM CHLORIDE. [Suspect]
     Active Substance: SODIUM CHLORIDE
     Indication: MEDICATION DILUTION
     Dosage: TO DILUTE CITICOLINE SODIUM INJECTION
     Route: 041
     Dates: start: 20200813, end: 20200818
  6. SODIUM CHLORIDE. [Suspect]
     Active Substance: SODIUM CHLORIDE
     Indication: MEDICATION DILUTION
     Route: 030
     Dates: start: 20200813, end: 20200818
  7. ADENOSYLCOBALAMIN [Suspect]
     Active Substance: COBAMAMIDE
     Indication: NUTRITIONAL SUPPLEMENTATION
     Route: 030
     Dates: start: 20200813, end: 20200818
  8. ROSUVASTATIN CALCIUM. [Suspect]
     Active Substance: ROSUVASTATIN CALCIUM
     Indication: CEREBRAL INFARCTION
     Dosage: 1 TABLET
     Route: 048
     Dates: start: 20200813, end: 20200818
  9. CITICOLINE SODIUM [Suspect]
     Active Substance: CITICOLINE SODIUM
     Indication: DRUG THERAPY
     Route: 041
     Dates: start: 20200813, end: 20200818
  10. 20% MANNITOL INJECTION [Suspect]
     Active Substance: MANNITOL
     Indication: HEADACHE
     Route: 041
     Dates: start: 20200815, end: 20200815
  11. VITAMIN B1 [Suspect]
     Active Substance: THIAMINE HYDROCHLORIDE
     Indication: VITAMIN SUPPLEMENTATION
     Dosage: 1 TABLET
     Route: 048
     Dates: start: 20200813, end: 20200818

REACTIONS (4)
  - Pruritus [Recovering/Resolving]
  - Joint swelling [Recovered/Resolved]
  - Erythema [Recovering/Resolving]
  - General symptom [Recovering/Resolving]

NARRATIVE: CASE EVENT DATE: 20200815
